FAERS Safety Report 7653024-5 (Version None)
Quarter: 2011Q3

REPORT INFORMATION
  Report Type: 
  Country: None (occurrence: None)
  Receive Date: 20110803
  Receipt Date: 20110729
  Transmission Date: 20111222
  Serious: Yes (Other)
  Sender: FDA-Public Use
  Company Number: FR-ROCHE-792187

PATIENT
  Sex: Male

DRUGS (3)
  1. CELLCEPT [Suspect]
     Route: 048
     Dates: start: 20110325, end: 20110531
  2. VALGANCICLOVIR [Suspect]
     Route: 048
     Dates: start: 20110325, end: 20110711
  3. NEUPOGEN [Concomitant]
     Dates: start: 20110706, end: 20110712

REACTIONS (1)
  - AGRANULOCYTOSIS [None]
